FAERS Safety Report 4484475-8 (Version None)
Quarter: 2004Q4

REPORT INFORMATION
  Report Type: 
  Country: None (occurrence: None)
  Receive Date: 20041025
  Receipt Date: 20040817
  Transmission Date: 20050328
  Serious: Yes (Other)
  Sender: FDA-Public Use
  Company Number: PHBS2004CA10830

PATIENT
  Age: 72 Year
  Sex: Female

DRUGS (6)
  1. DIOVAN [Suspect]
     Dosage: 80 MG/DAY
     Route: 048
     Dates: start: 20040401, end: 20040501
  2. DIOVAN [Suspect]
     Dosage: 160 MG/DAY
     Route: 048
     Dates: start: 20040501
  3. ALDACTAZIDE [Concomitant]
     Dosage: 12.5 MG, UNK
     Dates: start: 20030701
  4. MONOCOR [Concomitant]
  5. LOSEC [Concomitant]
     Dates: start: 20030701
  6. SPIRIVA [Concomitant]
     Dosage: UNK, UNK
     Dates: start: 20040301

REACTIONS (8)
  - ARTHRALGIA [None]
  - DIARRHOEA [None]
  - DRY MOUTH [None]
  - DYSPNOEA [None]
  - HYPOAESTHESIA [None]
  - OEDEMA PERIPHERAL [None]
  - PARAESTHESIA [None]
  - SWELLING FACE [None]
